FAERS Safety Report 16453177 (Version 7)
Quarter: 2020Q2

REPORT INFORMATION
  Report Type: Spontaneous
  Country: US (occurrence: US)
  Receive Date: 20190619
  Receipt Date: 20200609
  Transmission Date: 20200713
  Serious: No
  Sender: FDA-Public Use
  Company Number: US-SA-2019SA162110

PATIENT

DRUGS (18)
  1. DUPIXENT [Suspect]
     Active Substance: DUPILUMAB
     Indication: DERMATITIS ATOPIC
     Dosage: 300 MG, QOW
     Route: 058
     Dates: start: 20190605, end: 2019
  2. ASPIRIN EC [Concomitant]
     Active Substance: ASPIRIN
     Dosage: ADULT ASPIRIN EC LOW STRENGTH 81MG ORAL TABLET DELAYED RELEASE
  3. DUPIXENT [Suspect]
     Active Substance: DUPILUMAB
     Dosage: 1 ML OF DUPIXENT 300 MG/2ML
     Route: 058
     Dates: start: 20190814
  4. DUPIXENT [Suspect]
     Active Substance: DUPILUMAB
     Dosage: 200 MG, QOW
     Route: 058
     Dates: start: 20190717, end: 2019
  5. DUPIXENT [Suspect]
     Active Substance: DUPILUMAB
     Dosage: 300 MG, QOW
     Route: 058
     Dates: start: 2019, end: 20200526
  6. SERTRALINE HCL [Concomitant]
     Active Substance: SERTRALINE HYDROCHLORIDE
     Dosage: 1 DF, QD
  7. BETAMETHASONE DIPROPIONATE. [Concomitant]
     Active Substance: BETAMETHASONE DIPROPIONATE
     Indication: RASH
     Dosage: UNK UNK, BID
  8. CYCLOBENZAPRINE HCL [Concomitant]
     Active Substance: CYCLOBENZAPRINE HYDROCHLORIDE
     Indication: MUSCLE SPASMS
     Dosage: UNK UNK, TID, 1/2-1 TAB 3 TIMES DAILY AS NEEDED, 5 REFILLS
  9. DUPIXENT [Suspect]
     Active Substance: DUPILUMAB
     Indication: DERMATITIS ALLERGIC
     Dosage: 200 MG, QOW
     Route: 058
     Dates: start: 20190620, end: 2019
  10. DUPIXENT [Suspect]
     Active Substance: DUPILUMAB
     Indication: ECZEMA
     Dosage: 200 MG, QOW
     Route: 058
     Dates: start: 20190703, end: 2019
  11. DUPIXENT [Suspect]
     Active Substance: DUPILUMAB
     Dosage: 200 MG, QOW
     Route: 058
     Dates: start: 20190731, end: 2019
  12. BETAMETHASONE DIPROPIONATE. [Concomitant]
     Active Substance: BETAMETHASONE DIPROPIONATE
     Dosage: UNK, PRN
  13. GABAPENTIN. [Concomitant]
     Active Substance: GABAPENTIN
     Dosage: 1 DF, TID, 5 REFILLS
     Route: 048
  14. ROSUVASTATIN CALCIUM. [Concomitant]
     Active Substance: ROSUVASTATIN CALCIUM
     Dosage: 1 DF, QD, 3 REFILLS
     Route: 048
  15. VENTOLIN HFA [Concomitant]
     Active Substance: ALBUTEROL SULFATE
     Dosage: 108 (90 BASE)MCG/ACT INHALATION AEROSOL SOLUTION 2 INHALATIONS EVERY 4-6 HOURS AS NEEDED, 5 REFILLS
  16. LEVOTHYROXINE SODIUM. [Concomitant]
     Active Substance: LEVOTHYROXINE SODIUM
     Dosage: 1 DF, QD
     Route: 048
  17. LORAZEPAM. [Concomitant]
     Active Substance: LORAZEPAM
     Dosage: 1 DF, TID
  18. LISINOPRIL. [Concomitant]
     Active Substance: LISINOPRIL
     Dosage: 1 DF, QD, 11 REFILLS
     Route: 048

REACTIONS (16)
  - Diarrhoea [Recovered/Resolved]
  - Lymphadenopathy [Unknown]
  - Fatigue [Unknown]
  - Respiratory tract congestion [Unknown]
  - Erythema [Unknown]
  - Hypersensitivity [Unknown]
  - Myalgia [Unknown]
  - Pruritus [Unknown]
  - Dry skin [Unknown]
  - Condition aggravated [Unknown]
  - Rash erythematous [Unknown]
  - Back pain [Unknown]
  - Rash [Unknown]
  - Therapeutic response decreased [Unknown]
  - Rash [Unknown]
  - Product use issue [Unknown]

NARRATIVE: CASE EVENT DATE: 201906
